FAERS Safety Report 8176149-7 (Version None)
Quarter: 2012Q1

REPORT INFORMATION
  Report Type: 
  Country: None (occurrence: None)
  Receive Date: 20120227
  Receipt Date: 20120227
  Transmission Date: 20120608
  Serious: No
  Sender: FDA-Public Use
  Company Number: None

PATIENT
  Sex: Male

DRUGS (1)
  1. LEVETIRACETAM [Suspect]
     Indication: CONVULSION
     Dosage: 1000 MG 1 PO Q AM 1 1/2 PO Q PM
     Route: 048

REACTIONS (3)
  - VOMITING [None]
  - CONVULSION [None]
  - DIZZINESS [None]
